FAERS Safety Report 6959556-7 (Version None)
Quarter: 2010Q3

REPORT INFORMATION
  Report Type: 
  Country: None (occurrence: None)
  Receive Date: 20100827
  Receipt Date: 20100824
  Transmission Date: 20110219
  Serious: Yes (Death, Hospitalization)
  Sender: FDA-Public Use
  Company Number: 2009SP040043

PATIENT
  Age: 54 Year
  Sex: Male
  Weight: 62 kg

DRUGS (9)
  1. TEMODAL [Suspect]
     Indication: ANAPLASTIC ASTROCYTOMA
     Dosage: 82.3 MG/M2;QD;PO ; 141 MG/M2;QD;PO ; 141 MG/M2;QD;PO ; 141 MG/M2;QD;PO ; 82.3 MG/M2;QD;PO
     Route: 048
     Dates: start: 20080822, end: 20081007
  2. TEMODAL [Suspect]
     Indication: ANAPLASTIC ASTROCYTOMA
     Dosage: 82.3 MG/M2;QD;PO ; 141 MG/M2;QD;PO ; 141 MG/M2;QD;PO ; 141 MG/M2;QD;PO ; 82.3 MG/M2;QD;PO
     Route: 048
     Dates: start: 20081216, end: 20081221
  3. TEMODAL [Suspect]
     Indication: ANAPLASTIC ASTROCYTOMA
     Dosage: 82.3 MG/M2;QD;PO ; 141 MG/M2;QD;PO ; 141 MG/M2;QD;PO ; 141 MG/M2;QD;PO ; 82.3 MG/M2;QD;PO
     Route: 048
     Dates: start: 20090120, end: 20090125
  4. TEMODAL [Suspect]
     Indication: ANAPLASTIC ASTROCYTOMA
     Dosage: 82.3 MG/M2;QD;PO ; 141 MG/M2;QD;PO ; 141 MG/M2;QD;PO ; 141 MG/M2;QD;PO ; 82.3 MG/M2;QD;PO
     Route: 048
     Dates: start: 20090217, end: 20090222
  5. TEMODAL [Suspect]
     Indication: ANAPLASTIC ASTROCYTOMA
     Dosage: 82.3 MG/M2;QD;PO ; 141 MG/M2;QD;PO ; 141 MG/M2;QD;PO ; 141 MG/M2;QD;PO ; 82.3 MG/M2;QD;PO
     Route: 048
     Dates: start: 20090310, end: 20090312
  6. PREDNISOLONE [Suspect]
     Indication: PRODUCT USED FOR UNKNOWN INDICATION
     Dosage: PO
     Route: 048
     Dates: start: 20080822
  7. PHENOBARBITAL TAB [Concomitant]
  8. LOXONIN [Concomitant]
  9. MUCOSTA [Concomitant]

REACTIONS (3)
  - ANAPLASTIC ASTROCYTOMA [None]
  - MALIGNANT NEOPLASM PROGRESSION [None]
  - OESOPHAGEAL CANDIDIASIS [None]
